FAERS Safety Report 6660694-7 (Version None)
Quarter: 2010Q1

REPORT INFORMATION
  Report Type: 
  Country: None (occurrence: None)
  Receive Date: 20100331
  Receipt Date: 20100322
  Transmission Date: 20100710
  Serious: Yes (Hospitalization)
  Sender: FDA-Public Use
  Company Number: US-ASTRAZENECA-2010SE00546

PATIENT
  Age: 10377 Day
  Sex: Female

DRUGS (3)
  1. PULMICORT FLEXHALER [Suspect]
     Indication: ASTHMA
     Dosage: 90 MCG, TWO PUFFS DAILY
     Route: 055
     Dates: start: 20091130, end: 20091201
  2. XOPENEX [Concomitant]
     Indication: ASTHMA
     Dosage: 2 PUFFS
     Route: 048
     Dates: start: 20090430
  3. OBNATAL ONE [Concomitant]
     Dosage: DAILY
     Route: 048
     Dates: start: 20090325

REACTIONS (4)
  - CHEST DISCOMFORT [None]
  - DYSPNOEA [None]
  - OXYGEN SATURATION DECREASED [None]
  - THROAT IRRITATION [None]
